FAERS Safety Report 7003955-4 (Version None)
Quarter: 2010Q3

REPORT INFORMATION
  Report Type: 
  Country: None (occurrence: None)
  Receive Date: 20100920
  Receipt Date: 20091216
  Transmission Date: 20110219
  Serious: No
  Sender: FDA-Public Use
  Company Number: US-WYE-H12828210

PATIENT
  Sex: Male

DRUGS (3)
  1. PROTONIX [Suspect]
     Dosage: UNKNOWN
     Route: 065
  2. PLAVIX [Suspect]
     Dosage: UNKNOWN
     Route: 065
  3. ACETYLSALICYLIC ACID SRT [Suspect]
     Dosage: UNKNOWN
     Route: 065

REACTIONS (1)
  - GASTROOESOPHAGEAL REFLUX DISEASE [None]
